FAERS Safety Report 17613961 (Version 12)
Quarter: 2023Q2

REPORT INFORMATION
  Report Type: Report from Study
  Country: US (occurrence: US)
  Receive Date: 20200402
  Receipt Date: 20230623
  Transmission Date: 20230721
  Serious: No
  Sender: FDA-Public Use
  Company Number: NVSC2020US089663

PATIENT
  Sex: Male

DRUGS (1)
  1. COSENTYX [Suspect]
     Active Substance: SECUKINUMAB
     Indication: Product used for unknown indication
     Dosage: UNK
     Route: 058

REACTIONS (9)
  - Rash [Unknown]
  - Rash macular [Unknown]
  - Pruritus [Unknown]
  - Condition aggravated [Unknown]
  - Erythema [Unknown]
  - Skin mass [Unknown]
  - Product distribution issue [Unknown]
  - Product storage error [Unknown]
  - Memory impairment [Unknown]
